FAERS Safety Report 17486831 (Version 1)
Quarter: 2020Q1

REPORT INFORMATION
  Report Type: Spontaneous
  Country: US (occurrence: US)
  Receive Date: 20200303
  Receipt Date: 20200303
  Transmission Date: 20200409
  Serious: Yes (Hospitalization)
  Sender: FDA-Public Use
  Company Number: US-PROCTER_AND_GAMBLE-GS20021860

PATIENT

DRUGS (1)
  1. GILLETTE CLEAR ARCTIC ICE [Suspect]
     Active Substance: ALUMINUM ZIRCONIUM OCTACHLOROHYDREX GLY
     Route: 048

REACTIONS (4)
  - Unevaluable event [Unknown]
  - Incorrect route of product administration [Unknown]
  - Product selection error [Unknown]
  - Exposure via ingestion [Unknown]
